FAERS Safety Report 13429186 (Version 1)
Quarter: 2017Q2

REPORT INFORMATION
  Report Type: Spontaneous
  Country: PL (occurrence: PL)
  Receive Date: 20170411
  Receipt Date: 20170411
  Transmission Date: 20170830
  Serious: Yes (Other)
  Sender: FDA-Public Use
  Company Number: PHHY2017PL051600

PATIENT
  Age: 34 Year
  Sex: Male

DRUGS (1)
  1. DESFERAL [Suspect]
     Active Substance: DEFEROXAMINE MESYLATE
     Indication: IRON OVERLOAD
     Dosage: UNK
     Route: 065
     Dates: start: 1999

REACTIONS (12)
  - Arrhythmia [Unknown]
  - Asthenia [Unknown]
  - Cerebral ischaemia [Unknown]
  - Fatigue [Unknown]
  - Myocardial infarction [Unknown]
  - Liver injury [Unknown]
  - Transaminases increased [Unknown]
  - Syncope [Unknown]
  - Gastrointestinal disorder [Unknown]
  - Thyroid disorder [Unknown]
  - Diabetes mellitus [Unknown]
  - Depression [Unknown]

NARRATIVE: CASE EVENT DATE: 2006
